FAERS Safety Report 5970993-X (Version None)
Quarter: 2008Q4

REPORT INFORMATION
  Report Type: 
  Country: None (occurrence: None)
  Receive Date: 20081128
  Receipt Date: 20081122
  Transmission Date: 20090506
  Serious: Yes (Death, Other)
  Sender: FDA-Public Use
  Company Number: PHHY2007CA00841

PATIENT
  Sex: Male

DRUGS (5)
  1. GLEEVEC [Suspect]
     Indication: GASTROINTESTINAL STROMAL TUMOUR
     Dosage: 800 MG
     Route: 048
     Dates: start: 20041001, end: 20061001
  2. GLEEVEC [Suspect]
     Dosage: 400 MG
     Route: 048
     Dates: start: 20071101, end: 20071207
  3. PANTOLOC ^BYK GULDEN^ [Concomitant]
     Dosage: 40 MG, BID
  4. ONDANSETRON [Concomitant]
     Dosage: 8 MG, BID
     Route: 048
  5. FERROUS GLUCONATE [Concomitant]
     Dosage: 300 MG, TID

REACTIONS (7)
  - DEATH [None]
  - DYSPEPSIA [None]
  - INFLUENZA LIKE ILLNESS [None]
  - MALIGNANT NEOPLASM PROGRESSION [None]
  - MUSCULAR WEAKNESS [None]
  - NAUSEA [None]
  - RASH MORBILLIFORM [None]
